FAERS Safety Report 6372103-6 (Version None)
Quarter: 2009Q3

REPORT INFORMATION
  Report Type: 
  Country: None (occurrence: None)
  Receive Date: 20090917
  Receipt Date: 20090904
  Transmission Date: 20100115
  Serious: Yes (Hospitalization, Other)
  Sender: FDA-Public Use
  Company Number: ADR19042009

PATIENT
  Age: 39 Year
  Sex: Male

DRUGS (7)
  1. SALBUTAMOL (MFR: UNKNOWN) [Suspect]
     Indication: ASTHMA
     Dosage: 5MG,  INHALATION
  2. AMOXICILLIN [Concomitant]
  3. CORTICOSTEROID (1DF) [Concomitant]
  4. HYDROCORTISONE (200 MG) [Concomitant]
  5. IPRATROPIUM BROMIDE (0.5 MG) [Concomitant]
  6. MAGNESIUM SULPHATE (2G) [Concomitant]
  7. PREDNISOLONE (30 MG) [Concomitant]

REACTIONS (13)
  - BLOOD GLUCOSE ABNORMAL [None]
  - BLOOD PRESSURE ABNORMAL [None]
  - CHEST X-RAY ABNORMAL [None]
  - DRUG TOXICITY [None]
  - DYSPNOEA AT REST [None]
  - HYPERCAPNIA [None]
  - LACTIC ACIDOSIS [None]
  - OXYGEN SATURATION ABNORMAL [None]
  - PULSE ABNORMAL [None]
  - RESPIRATION ABNORMAL [None]
  - RESPIRATORY ACIDOSIS [None]
  - RESPIRATORY FAILURE [None]
  - WHEEZING [None]
